FAERS Safety Report 5465628-9 (Version None)
Quarter: 2007Q3

REPORT INFORMATION
  Report Type: 
  Country: None (occurrence: None)
  Receive Date: 20070919
  Receipt Date: 20070919
  Transmission Date: 20080115
  Serious: Yes (Congenital Anomaly)
  Sender: FDA-Public Use
  Company Number: None

PATIENT
  Sex: Male
  Weight: 6.804 kg

DRUGS (2)
  1. MACROBID [Suspect]
     Indication: DRUG EXPOSURE DURING PREGNANCY
     Dates: start: 20010301, end: 20070401
  2. MACROBID [Suspect]
     Indication: KIDNEY INFECTION
     Dates: start: 20010301, end: 20070401

REACTIONS (3)
  - DRUG EXPOSURE DURING PREGNANCY [None]
  - PREMATURE CLOSURE OF CRANIAL SUTURES [None]
  - SYNOSTOSIS [None]
